FAERS Safety Report 7802767-9 (Version None)
Quarter: 2011Q4

REPORT INFORMATION
  Report Type: 
  Country: None (occurrence: None)
  Receive Date: 20111007
  Receipt Date: 20111003
  Transmission Date: 20120403
  Serious: Yes (Life-Threatening)
  Sender: FDA-Public Use
  Company Number: PHHY2011GB61769

PATIENT
  Age: 80 Year
  Sex: Male
  Weight: 78 kg

DRUGS (8)
  1. FERROUS FUMARATE [Concomitant]
  2. ACETAMINOPHEN [Concomitant]
  3. INDAPAMIDE [Concomitant]
  4. PERINDOPRIL ERBUMINE [Concomitant]
  5. SIMVASTATIN [Concomitant]
  6. CLOPIDOGREL [Concomitant]
  7. RABEPRAZOLE SODIUM [Concomitant]
  8. CLARITHROMYCIN [Suspect]
     Indication: LOWER RESPIRATORY TRACT INFECTION
     Dosage: 500 MG, BID
     Route: 048
     Dates: start: 20110614, end: 20110615

REACTIONS (8)
  - SYNCOPE [None]
  - ARRHYTHMIA [None]
  - ELECTROCARDIOGRAM QT PROLONGED [None]
  - CIRCULATORY COLLAPSE [None]
  - CONSCIOUSNESS FLUCTUATING [None]
  - HYPOTENSION [None]
  - INCONTINENCE [None]
  - HYPOXIA [None]
